FAERS Safety Report 6196398-7 (Version None)
Quarter: 2009Q2

REPORT INFORMATION
  Report Type: 
  Country: None (occurrence: None)
  Receive Date: 20090518
  Receipt Date: 20090518
  Transmission Date: 20091009
  Serious: Yes (Hospitalization)
  Sender: FDA-Public Use
  Company Number: None

PATIENT
  Sex: Male
  Weight: 74.5 kg

DRUGS (4)
  1. MERCAPTOPURINE [Suspect]
     Dosage: 2437.5 MG
     Dates: end: 20090430
  2. METHOTREXATE [Suspect]
     Dosage: 160 MG
     Dates: end: 20090429
  3. VINCRISTINE SULFATE [Suspect]
     Dosage: 2 MG
     Dates: end: 20090422
  4. DEXAMETHASONE 4MG TAB [Suspect]
     Dosage: 60 MG
     Dates: end: 20090426

REACTIONS (5)
  - ABDOMINAL PAIN LOWER [None]
  - ODYNOPHAGIA [None]
  - PHARYNGITIS [None]
  - PYREXIA [None]
  - UPPER RESPIRATORY TRACT INFECTION [None]
